FAERS Safety Report 7782198-0 (Version None)
Quarter: 2011Q3

REPORT INFORMATION
  Report Type: 
  Country: None (occurrence: None)
  Receive Date: 20110927
  Receipt Date: 20110920
  Transmission Date: 20111222
  Serious: Yes (Hospitalization)
  Sender: FDA-Public Use
  Company Number: EG-SANOFI-AVENTIS-2011SA061941

PATIENT
  Age: 55 Year
  Sex: Female

DRUGS (16)
  1. PLAVIX [Suspect]
     Indication: ISCHAEMIC STROKE
     Dosage: DOSE:1 UNIT(S)
     Route: 048
     Dates: start: 20110701, end: 20110814
  2. ZANTAC [Concomitant]
     Dates: end: 20110814
  3. TRIMEBUTINE [Concomitant]
     Dates: end: 20110814
  4. AMARYL [Concomitant]
     Dates: end: 20110814
  5. ACETYLCYSTEINE [Concomitant]
     Dates: end: 20110814
  6. BISOPROLOL FUMARATE [Concomitant]
     Dates: end: 20110814
  7. ASPIRIN [Concomitant]
     Dates: end: 20110814
  8. TANAKAN [Concomitant]
     Dates: end: 20110814
  9. ACETAMINOPHEN [Concomitant]
     Dates: end: 20110814
  10. MOTILIUM [Concomitant]
     Dates: end: 20110814
  11. OMEPRAZOLE [Concomitant]
     Dates: end: 20110814
  12. NORETHINDRONE [Concomitant]
     Dates: end: 20110814
  13. PRIMPERAN TAB [Concomitant]
     Dates: end: 20110814
  14. KETOPROFEN [Concomitant]
     Dates: end: 20110814
  15. TRENTAL [Concomitant]
     Dates: end: 20110814
  16. NIFEDIPINE [Concomitant]
     Dates: end: 20110814

REACTIONS (6)
  - PYREXIA [None]
  - RENAL FAILURE ACUTE [None]
  - TRANSAMINASES INCREASED [None]
  - NAUSEA [None]
  - JAUNDICE [None]
  - VOMITING [None]
